FAERS Safety Report 15743482 (Version 1)
Quarter: 2018Q4

REPORT INFORMATION
  Report Type: Spontaneous
  Country: GB (occurrence: GB)
  Receive Date: 20181220
  Receipt Date: 20181220
  Transmission Date: 20190205
  Serious: Yes (Hospitalization, Other)
  Sender: FDA-Public Use
  Company Number: GB-TEVA-2018-GB-989594

PATIENT
  Age: 78 Year
  Sex: Male

DRUGS (5)
  1. TRIMETHOPRIM. [Interacting]
     Active Substance: TRIMETHOPRIM
     Dosage: 400 MILLIGRAM DAILY;
     Route: 048
     Dates: start: 20181010, end: 20181017
  2. BUMETANIDE. [Interacting]
     Active Substance: BUMETANIDE
     Dosage: 1 MILLIGRAM DAILY; IN THE MORNING.
     Route: 048
     Dates: start: 20181024
  3. ATORVASTATIN [Concomitant]
     Active Substance: ATORVASTATIN
     Dosage: 40 MILLIGRAM DAILY; AT NIGHT.
     Route: 065
  4. TRIMETHOPRIM. [Suspect]
     Active Substance: TRIMETHOPRIM
     Indication: URINARY TRACT INFECTION
     Dosage: 400 MILLIGRAM DAILY;
     Route: 048
     Dates: start: 20181022
  5. BISOPROLOL [Concomitant]
     Active Substance: BISOPROLOL
     Dosage: 1.25 MILLIGRAM DAILY; IN THE MORNING.
     Route: 065

REACTIONS (4)
  - Hypotension [Unknown]
  - Urosepsis [Unknown]
  - Acute kidney injury [Recovering/Resolving]
  - Labelled drug-drug interaction medication error [Unknown]

NARRATIVE: CASE EVENT DATE: 20181024
